FAERS Safety Report 8114175-4 (Version None)
Quarter: 2012Q1

REPORT INFORMATION
  Report Type: 
  Country: None (occurrence: None)
  Receive Date: 20120205
  Receipt Date: 20120127
  Transmission Date: 20120608
  Serious: Yes (Hospitalization)
  Sender: FDA-Public Use
  Company Number: PHHY2012AU008696

PATIENT
  Age: 21 Year
  Sex: Female

DRUGS (2)
  1. IBUPROFEN [Suspect]
     Indication: MIGRAINE
     Dosage: UNK UKN, UNK
  2. CODEINE PHOSPHATE [Suspect]
     Indication: MIGRAINE
     Dosage: UNK UKN, UNK

REACTIONS (2)
  - OVERDOSE [None]
  - PANCREATITIS ACUTE [None]
